FAERS Safety Report 9966029 (Version 1)
Quarter: 2014Q1

REPORT INFORMATION
  Report Type: Report from Study
  Country: US (occurrence: US)
  Receive Date: 20140305
  Receipt Date: 20140305
  Transmission Date: 20141002
  Serious: No
  Sender: FDA-Public Use
  Company Number: US-ABBVIE-13P-163-1127680-00

PATIENT
  Age: 18 Year
  Sex: Female

DRUGS (4)
  1. HUMIRA [Suspect]
     Indication: PRODUCT USED FOR UNKNOWN INDICATION
     Dates: start: 20130420, end: 20130629
  2. MELOXICAM [Concomitant]
     Indication: ARTHRITIS
  3. ZYRTEC [Concomitant]
     Indication: HYPERSENSITIVITY
  4. PRILOSEC [Concomitant]
     Indication: DYSPEPSIA

REACTIONS (2)
  - Urinary tract infection [Recovered/Resolved]
  - Sinusitis [Recovered/Resolved]
